FAERS Safety Report 23605187 (Version 4)
Quarter: 2024Q2

REPORT INFORMATION
  Report Type: Spontaneous
  Country: US (occurrence: US)
  Receive Date: 20240307
  Receipt Date: 20240606
  Transmission Date: 20240716
  Serious: No
  Sender: FDA-Public Use
  Company Number: US-PFIZER INC-202400045450

PATIENT
  Age: 13 Year
  Sex: Male
  Weight: 80.29 kg

DRUGS (3)
  1. GENOTROPIN [Suspect]
     Active Substance: SOMATROPIN
     Indication: Hyperpituitarism
     Dosage: 1.4 MG (DAILY FOR 6 DAYS A WEEK)
     Dates: start: 202401, end: 20240216
  2. HYDROCORTISONE [Concomitant]
     Active Substance: HYDROCORTISONE
     Dosage: 12.5 MG, DAILY (5 MG AT MORNING AND NOON, 2.5 MG AT BEDTIME)
  3. LEVOTHYROXINE [Concomitant]
     Active Substance: LEVOTHYROXINE\LEVOTHYROXINE SODIUM
     Dosage: 100 UG, DAILY

REACTIONS (4)
  - Drug dose omission by device [Unknown]
  - Device use error [Unknown]
  - Device breakage [Unknown]
  - Device leakage [Unknown]

NARRATIVE: CASE EVENT DATE: 20240216
